FAERS Safety Report 8021254-9 (Version None)
Quarter: 2012Q1

REPORT INFORMATION
  Report Type: 
  Country: None (occurrence: None)
  Receive Date: 20120104
  Receipt Date: 20111222
  Transmission Date: 20120608
  Serious: Yes (Hospitalization)
  Sender: FDA-Public Use
  Company Number: DE-ELI_LILLY_AND_COMPANY-DE201007001510

PATIENT
  Sex: Female
  Weight: 76 kg

DRUGS (2)
  1. DOCETAXEL [Suspect]
     Indication: BREAST CANCER
     Dosage: 135 MG, UNKNOWN
     Route: 042
     Dates: end: 20100616
  2. GEMCITABINE HYDROCHLORIDE [Suspect]
     Indication: BREAST CANCER
     Dosage: 1850 MG, UNKNOWN
     Route: 042
     Dates: end: 20100616

REACTIONS (1)
  - INFECTION [None]
